FAERS Safety Report 25341011 (Version 1)
Quarter: 2025Q2

REPORT INFORMATION
  Report Type: Spontaneous
  Country: US (occurrence: US)
  Receive Date: 20250521
  Receipt Date: 20250521
  Transmission Date: 20250717
  Serious: Yes (Other)
  Sender: GLAND PHARMA LTD
  Company Number: US-GLANDPHARMA-US-2025GLNLIT01281

PATIENT
  Age: 80 Year
  Sex: Female

DRUGS (1)
  1. PANTOPRAZOLE SODIUM [Suspect]
     Active Substance: PANTOPRAZOLE SODIUM
     Indication: Product used for unknown indication
     Route: 065

REACTIONS (5)
  - Gastric perforation [Recovered/Resolved]
  - Arteriovenous malformation [Recovered/Resolved]
  - Pneumoperitoneum [Recovered/Resolved]
  - Overgrowth bacterial [Recovered/Resolved]
  - Haemorrhage [Recovered/Resolved]
